FAERS Safety Report 8121507-X (Version None)
Quarter: 2012Q1

REPORT INFORMATION
  Report Type: 
  Country: None (occurrence: None)
  Receive Date: 20120208
  Receipt Date: 20120203
  Transmission Date: 20120608
  Serious: No
  Sender: FDA-Public Use
  Company Number: US-PFIZER INC-2012030667

PATIENT

DRUGS (2)
  1. ADVAIR DISKUS 100/50 [Suspect]
     Dosage: 250/50X2
  2. ZOLOFT [Suspect]
     Dosage: 100 MG, UNK

REACTIONS (1)
  - HYPERTENSION [None]
